FAERS Safety Report 7912835-9 (Version None)
Quarter: 2011Q4

REPORT INFORMATION
  Report Type: 
  Country: None (occurrence: None)
  Receive Date: 20111114
  Receipt Date: 20111107
  Transmission Date: 20120403
  Serious: Yes (Death)
  Sender: FDA-Public Use
  Company Number: US-GLAXOSMITHKLINE-A0952706A

PATIENT
  Age: 21 Year
  Sex: Male

DRUGS (6)
  1. RAPAMUNE [Concomitant]
  2. MORPHINE SULFATE [Concomitant]
  3. MS CONTIN [Concomitant]
  4. TYKERB [Suspect]
     Dosage: 500MG PER DAY
     Route: 048
     Dates: start: 20110825, end: 20111031
  5. VALIUM [Concomitant]
  6. LEXAPRO [Concomitant]

REACTIONS (1)
  - DEATH [None]
